FAERS Safety Report 11965136 (Version 1)
Quarter: 2016Q1

REPORT INFORMATION
  Report Type: Spontaneous
  Country: US (occurrence: None)
  Receive Date: 20160125
  Receipt Date: 20160125
  Transmission Date: 20160526
  Serious: Yes (Other)
  Sender: FDA-Public Use
  Company Number: None

PATIENT
  Age: 49 Year
  Sex: Female

DRUGS (9)
  1. AMLODIPINE [Concomitant]
     Active Substance: AMLODIPINE BESYLATE
  2. VITAMIN B12 [Concomitant]
     Active Substance: CYANOCOBALAMIN
  3. GABAPENTIN. [Concomitant]
     Active Substance: GABAPENTIN
  4. MULTIVITAMIN [Concomitant]
     Active Substance: VITAMINS
  5. DOCETAXEL 130MG IN 250ML DSW BAXTER [Suspect]
     Active Substance: DOCETAXEL
     Indication: UTERINE LEIOMYOSARCOMA
     Dosage: 130MG IN 250ML DSW ONCE EVERY TWO WEEK INTO A VEIN
     Dates: start: 20151230, end: 20151230
  6. ATENOLOL. [Concomitant]
     Active Substance: ATENOLOL
  7. XARELTO [Concomitant]
     Active Substance: RIVAROXABAN
  8. FENOFIBRATE. [Concomitant]
     Active Substance: FENOFIBRATE
  9. DEXAMETHASONE. [Concomitant]
     Active Substance: DEXAMETHASONE

REACTIONS (4)
  - Infusion site erythema [None]
  - Infusion site pain [None]
  - Infusion site swelling [None]
  - Infusion site extravasation [None]

NARRATIVE: CASE EVENT DATE: 20151230
